FAERS Safety Report 14077195 (Version 1)
Quarter: 2017Q4

REPORT INFORMATION
  Report Type: Spontaneous
  Country: US (occurrence: US)
  Receive Date: 20171012
  Receipt Date: 20171012
  Transmission Date: 20180321
  Serious: Yes (Death, Life-Threatening, Hospitalization, Other)
  Sender: FDA-Public Use
  Company Number: US-009507513-1710USA005882

PATIENT
  Age: 60 Year
  Sex: Male

DRUGS (2)
  1. XARELTO [Concomitant]
     Active Substance: RIVAROXABAN
     Indication: PULMONARY EMBOLISM
  2. HEXADROL [Suspect]
     Active Substance: DEXAMETHASONE
     Indication: PULMONARY EMBOLISM
     Route: 048

REACTIONS (4)
  - Necrotising fasciitis [Fatal]
  - Septic shock [Fatal]
  - Multiple organ dysfunction syndrome [Fatal]
  - Aeromonas infection [Fatal]
